FAERS Safety Report 8724848 (Version 2)
Quarter: 2012Q4

REPORT INFORMATION
  Report Type: 
  Country: US (occurrence: US)
  Receive Date: 20120815
  Receipt Date: 20120907
  Transmission Date: 20130627
  Serious: Yes (Hospitalization, Other)
  Sender: FDA-Public Use
  Company Number: US-MYLANLABS-2012S1016000

PATIENT
  Age: 65 Year
  Sex: Male

DRUGS (10)
  1. CLOZAPINE TABLETS [Suspect]
     Indication: SCHIZOPHRENIA
     Route: 048
     Dates: start: 201108, end: 20120730
  2. CLOZAPINE TABLETS [Suspect]
     Indication: PSYCHOTIC DISORDER
     Route: 048
     Dates: start: 201108, end: 20120730
  3. HALOPERIDOL [Concomitant]
  4. IPRATROPIUM [Concomitant]
  5. METFORMIN [Concomitant]
  6. PANTOPRAZOLE [Concomitant]
  7. SIMVASTATIN [Concomitant]
  8. LEVOTHYROXINE [Concomitant]
  9. TAMSULOSIN [Concomitant]
  10. VALPROIC ACID [Concomitant]

REACTIONS (3)
  - Pneumonia [Recovered/Resolved]
  - Dehydration [Recovered/Resolved]
  - Granulocytopenia [Not Recovered/Not Resolved]
